FAERS Safety Report 8592024-8 (Version None)
Quarter: 2012Q3

REPORT INFORMATION
  Report Type: 
  Country: None (occurrence: None)
  Receive Date: 20120814
  Receipt Date: 20120810
  Transmission Date: 20120928
  Serious: Yes (Death, Hospitalization)
  Sender: FDA-Public Use
  Company Number: PHHY2012BR070050

PATIENT
  Sex: Female

DRUGS (3)
  1. FORMOTEROL FUMARATE [Suspect]
     Indication: EMPHYSEMA
     Dosage: UNK UKN, UNK
  2. OXYGEN [Concomitant]
     Dosage: UNK UKN, UNK
  3. FORMOTEROL FUMARATE [Suspect]
     Indication: DYSPNOEA

REACTIONS (2)
  - RESPIRATORY FAILURE [None]
  - DYSPNOEA [None]
